FAERS Safety Report 4635617-2 (Version None)
Quarter: 2005Q2

REPORT INFORMATION
  Report Type: 
  Country: None (occurrence: None)
  Receive Date: 20050413
  Receipt Date: 20050330
  Transmission Date: 20051028
  Serious: Yes (Other)
  Sender: FDA-Public Use
  Company Number: 213502

PATIENT
  Sex: Female

DRUGS (2)
  1. RITUXAN [Suspect]
     Dosage: INTRAVENOUS
     Route: 042
     Dates: start: 20050101
  2. PREDNISONE [Concomitant]

REACTIONS (3)
  - DELIRIUM [None]
  - DEMENTIA [None]
  - PSYCHOTIC DISORDER [None]
